FAERS Safety Report 21274791 (Version 1)
Quarter: 2022Q3

REPORT INFORMATION
  Report Type: Spontaneous
  Country: US (occurrence: US)
  Receive Date: 20220831
  Receipt Date: 20220831
  Transmission Date: 20221027
  Serious: No
  Sender: FDA-Public Use
  Company Number: US-AMERICAN REGENT INC-2021002191

PATIENT
  Sex: Female

DRUGS (3)
  1. FERRIC CARBOXYMALTOSE [Suspect]
     Active Substance: FERRIC CARBOXYMALTOSE
     Indication: Product used for unknown indication
     Dosage: 750 MILLIGRAM, SINGLE (SECOND COURSE OF INJECTAFER)
     Route: 065
     Dates: start: 202101, end: 202101
  2. FERRIC CARBOXYMALTOSE [Suspect]
     Active Substance: FERRIC CARBOXYMALTOSE
     Dosage: 750 MILLIGRAM, SINGLE (SECOND COURSE OF INJECTAFER)
     Route: 065
     Dates: start: 202101
  3. FERRIC CARBOXYMALTOSE [Suspect]
     Active Substance: FERRIC CARBOXYMALTOSE
     Dosage: UNK, FIRST COURSE OF INJECTAFER
     Route: 065

REACTIONS (4)
  - Pain [Not Recovered/Not Resolved]
  - Malaise [Unknown]
  - Flank pain [Unknown]
  - Headache [Unknown]

NARRATIVE: CASE EVENT DATE: 20210101
